FAERS Safety Report 5878581-0 (Version None)
Quarter: 2008Q3

REPORT INFORMATION
  Report Type: 
  Country: None (occurrence: None)
  Receive Date: 20080909
  Receipt Date: 20080829
  Transmission Date: 20090109
  Serious: Yes (Hospitalization)
  Sender: FDA-Public Use
  Company Number: GXKR2008NO08352

PATIENT
  Age: 66 Year
  Sex: Female

DRUGS (2)
  1. SIMVASTATIN [Suspect]
     Indication: TYPE IIA HYPERLIPIDAEMIA
     Dosage: ORAL
     Route: 048
     Dates: end: 20080701
  2. NORMORIX MITE (AMILORIDE HYDROCHLORIDE, HYDROCHLOROTHIAZIDE) UNKNOWN [Concomitant]

REACTIONS (6)
  - ABDOMINAL PAIN UPPER [None]
  - GASTRODUODENITIS [None]
  - GASTROOESOPHAGEAL REFLUX DISEASE [None]
  - NAUSEA [None]
  - OESOPHAGITIS [None]
  - WEIGHT DECREASED [None]
